FAERS Safety Report 7680372-5 (Version None)
Quarter: 2011Q3

REPORT INFORMATION
  Report Type: 
  Country: None (occurrence: None)
  Receive Date: 20110812
  Receipt Date: 20110808
  Transmission Date: 20111222
  Serious: Yes (Death)
  Sender: FDA-Public Use
  Company Number: TR-GLAXOSMITHKLINE-B0738944A

PATIENT
  Age: 11 Year

DRUGS (2)
  1. DEPAKENE [Concomitant]
     Route: 065
     Dates: start: 20110501
  2. LAMICTAL [Suspect]
     Indication: PRODUCT USED FOR UNKNOWN INDICATION
     Route: 065
     Dates: start: 20110501

REACTIONS (3)
  - TREATMENT FAILURE [None]
  - DEATH [None]
  - STEVENS-JOHNSON SYNDROME [None]
